FAERS Safety Report 7310644-5 (Version None)
Quarter: 2011Q1

REPORT INFORMATION
  Report Type: 
  Country: None (occurrence: None)
  Receive Date: 20110224
  Receipt Date: 20100616
  Transmission Date: 20110831
  Serious: No
  Sender: FDA-Public Use
  Company Number: US-BRISTOL-MYERS SQUIBB COMPANY-15151830

PATIENT
  Age: 64 Year
  Sex: Male
  Weight: 104 kg

DRUGS (2)
  1. BENAZEPRIL HYDROCHLORIDE [Concomitant]
  2. GLUCOPHAGE [Suspect]
     Indication: TYPE 2 DIABETES MELLITUS
     Dosage: STARTED WITH 500MG P.O IN 1995,INCRESED TO 1000MG P.O. BID.
     Route: 048
     Dates: start: 19950101

REACTIONS (2)
  - DIARRHOEA [None]
  - ABDOMINAL PAIN UPPER [None]
